FAERS Safety Report 6768060-0 (Version None)
Quarter: 2010Q2

REPORT INFORMATION
  Report Type: 
  Country: None (occurrence: None)
  Receive Date: 20100614
  Receipt Date: 20100611
  Transmission Date: 20101027
  Serious: Yes (Hospitalization)
  Sender: FDA-Public Use
  Company Number: DE-WYE-H01210907

PATIENT
  Sex: Male
  Weight: 66 kg

DRUGS (7)
  1. RAPAMUNE [Suspect]
     Indication: PROPHYLAXIS AGAINST TRANSPLANT REJECTION
     Route: 048
     Dates: start: 20070201
  2. PREDNISOLONE [Concomitant]
     Dosage: 2.5 MG/FREQUENCY NOT PROVIDED
     Route: 065
  3. CLEXANE [Concomitant]
     Dosage: NOT PROVIDED
     Route: 058
  4. PANTOZOL [Concomitant]
     Dosage: 40 MG/FREQUENCY NOT PROVIDED
     Route: 065
  5. RAMIPRIL [Concomitant]
     Dosage: 2.5 MG/FREQUENCY NOT PROVIDED
     Route: 065
  6. CELLCEPT [Concomitant]
     Dosage: 2 TIMES 500 MG/FREQUENCY NOT PROVIDED
     Route: 065
  7. URSO FALK [Concomitant]
     Dosage: 2 TIMES 500 MG/FREQUENCY NOT PROVIDED
     Route: 065

REACTIONS (1)
  - HEPATIC FIBROSIS [None]
